FAERS Safety Report 7300074-4 (Version None)
Quarter: 2011Q1

REPORT INFORMATION
  Report Type: 
  Country: None (occurrence: None)
  Receive Date: 20110217
  Receipt Date: 20110214
  Transmission Date: 20110831
  Serious: Yes (Other)
  Sender: FDA-Public Use
  Company Number: US-AMGEN-USASP2011003965

PATIENT
  Age: 62 Year
  Sex: Female

DRUGS (3)
  1. NPLATE [Suspect]
     Indication: PRODUCT USED FOR UNKNOWN INDICATION
     Dates: start: 20100723, end: 20100922
  2. NPLATE [Suspect]
     Dosage: UNK
     Dates: start: 20070101, end: 20080101
  3. CORTICOSTEROIDS [Concomitant]
     Indication: IDIOPATHIC THROMBOCYTOPENIC PURPURA

REACTIONS (2)
  - CHRONIC MYELOMONOCYTIC LEUKAEMIA [None]
  - MULTIPLE MYELOMA [None]
